FAERS Safety Report 9160289 (Version 4)
Quarter: 2018Q2

REPORT INFORMATION
  Report Type: Report from Study
  Country: ZA (occurrence: ZA)
  Receive Date: 20130313
  Receipt Date: 20180607
  Transmission Date: 20180711
  Serious: Yes (Death, Hospitalization)
  Sender: FDA-Public Use
  Company Number: ZA-ROCHE-1200571

PATIENT
  Age: 55 Year
  Sex: Male

DRUGS (6)
  1. EPOETIN BETA [Suspect]
     Active Substance: ERYTHROPOIETIN
     Route: 065
     Dates: start: 20110803
  2. MIRCERA [Suspect]
     Active Substance: METHOXY POLYETHYLENE GLYCOL-EPOETIN BETA
     Route: 065
     Dates: start: 20120125
  3. VENOFER [Concomitant]
     Active Substance: IRON SUCROSE
     Dosage: 100MG/MONTH
     Route: 065
  4. MIRCERA [Suspect]
     Active Substance: METHOXY POLYETHYLENE GLYCOL-EPOETIN BETA
     Route: 065
     Dates: start: 20111025
  5. MIRCERA [Suspect]
     Active Substance: METHOXY POLYETHYLENE GLYCOL-EPOETIN BETA
     Indication: NEPHROGENIC ANAEMIA
     Route: 058
     Dates: start: 20130131
  6. EPOETIN BETA [Suspect]
     Active Substance: ERYTHROPOIETIN
     Indication: NEPHROGENIC ANAEMIA
     Route: 065
     Dates: start: 20100209

REACTIONS (3)
  - Myocardial infarction [Unknown]
  - Vascular graft [Fatal]
  - Coronary artery bypass [Unknown]

NARRATIVE: CASE EVENT DATE: 20130303
